FAERS Safety Report 21789138 (Version 1)
Quarter: 2022Q4

REPORT INFORMATION
  Report Type: Spontaneous
  Country: US (occurrence: None)
  Receive Date: 20221227
  Receipt Date: 20221227
  Transmission Date: 20230113
  Serious: Yes (Other)
  Sender: FDA-Public Use
  Company Number: None

PATIENT
  Age: 62 Year
  Sex: Male
  Weight: 98 kg

DRUGS (1)
  1. DAPTOMYCIN [Suspect]
     Active Substance: DAPTOMYCIN

REACTIONS (3)
  - Dyspnoea [None]
  - Acute respiratory failure [None]
  - Eosinophilic pneumonia [None]

NARRATIVE: CASE EVENT DATE: 20191012
